FAERS Safety Report 9125613 (Version 1)
Quarter: 2013Q1

REPORT INFORMATION
  Report Type: Spontaneous
  Country: IT (occurrence: IT)
  Receive Date: 20130227
  Receipt Date: 20130227
  Transmission Date: 20140127
  Serious: Yes (Other)
  Sender: FDA-Public Use
  Company Number: IT-BAYER-2013-024866

PATIENT
  Age: 57 Year
  Sex: Female

DRUGS (3)
  1. CARDIOASPIRIN [Suspect]
     Indication: ANTIPLATELET THERAPY
     Dosage: 100 MG, ONCE
     Route: 048
     Dates: start: 20130109, end: 20130109
  2. LANSOPRAZOLE [Concomitant]
     Indication: GASTROOESOPHAGEAL REFLUX DISEASE
     Dosage: UNK
  3. ATORVASTATIN [Concomitant]
     Indication: HYPERCHOLESTEROLAEMIA

REACTIONS (4)
  - Pharyngeal oedema [Recovering/Resolving]
  - Pruritus generalised [Recovering/Resolving]
  - Dermatitis bullous [Recovering/Resolving]
  - Urticaria [Recovering/Resolving]
